FAERS Safety Report 25022263 (Version 1)
Quarter: 2025Q1

REPORT INFORMATION
  Report Type: Spontaneous
  Country: ES (occurrence: ES)
  Receive Date: 20250228
  Receipt Date: 20250228
  Transmission Date: 20250408
  Serious: Yes (Other)
  Sender: ROCHE
  Company Number: None

PATIENT
  Age: 63 Year
  Sex: Male

DRUGS (3)
  1. TOCILIZUMAB [Suspect]
     Active Substance: TOCILIZUMAB
     Indication: Vasculitis
     Route: 058
     Dates: start: 20241209
  2. OMEPRAZOL CINFA 20 mg CAPSULAS DURAS GASTRORRESISTENTES EFG , 28 c?psu [Concomitant]
     Route: 048
     Dates: start: 20240819
  3. PREDNISONA KERN PHARMA 5 mg COMPRIMIDOS EFG, 60 comprimidos [Concomitant]
     Route: 048
     Dates: start: 20240819

REACTIONS (2)
  - Dysgeusia [Recovering/Resolving]
  - Dysgeusia [Recovering/Resolving]

NARRATIVE: CASE EVENT DATE: 20250104
